FAERS Safety Report 20835972 (Version 1)
Quarter: 2022Q2

REPORT INFORMATION
  Report Type: Spontaneous
  Country: US (occurrence: US)
  Receive Date: 20220516
  Receipt Date: 20220516
  Transmission Date: 20220721
  Serious: Yes (Other)
  Sender: FDA-Public Use
  Company Number: US-BRISTOL-MYERS SQUIBB COMPANY-2022-033555

PATIENT
  Age: 76 Year
  Sex: Male
  Weight: 48 kg

DRUGS (1)
  1. POMALYST [Suspect]
     Active Substance: POMALIDOMIDE
     Indication: Plasma cell myeloma
     Dosage: 3 WEEKS ON 1 WEEK OFF
     Route: 048
     Dates: start: 20190617, end: 20220502

REACTIONS (1)
  - Malignant neoplasm progression [Not Recovered/Not Resolved]
